FAERS Safety Report 9536224 (Version 1)
Quarter: 2013Q2

REPORT INFORMATION
  Report Type: Spontaneous
  Country: US (occurrence: None)
  Receive Date: 20130507
  Receipt Date: 20130507
  Transmission Date: 20140414
  Serious: Yes (Other)
  Sender: FDA-Public Use
  Company Number: PHEH2013US004062

PATIENT
  Sex: 0

DRUGS (2)
  1. AFINITOR (RAD) [Suspect]
     Indication: BREAST CANCER
  2. VORICONAZOLE (VORICONAZOLE) [Concomitant]

REACTIONS (2)
  - Pneumonia fungal [None]
  - Influenza A virus test positive [None]
